FAERS Safety Report 5173737-7 (Version None)
Quarter: 2006Q4

REPORT INFORMATION
  Report Type: 
  Country: None (occurrence: None)
  Receive Date: 20061214
  Receipt Date: 20061205
  Transmission Date: 20070319
  Serious: Yes (Hospitalization)
  Sender: FDA-Public Use
  Company Number: 2006CG01992

PATIENT
  Age: 23554 Day
  Sex: Male

DRUGS (6)
  1. CRESTOR [Suspect]
     Route: 048
     Dates: start: 19990701
  2. ASPIRIN [Suspect]
     Route: 048
     Dates: start: 19990701
  3. NISISCO [Suspect]
     Route: 048
     Dates: start: 19990701
  4. KERLONE [Concomitant]
     Dates: start: 19990101
  5. LERCAN [Concomitant]
     Dates: start: 20050101
  6. OMACOR [Concomitant]
     Dates: start: 20050101

REACTIONS (1)
  - TONGUE OEDEMA [None]
